FAERS Safety Report 24189543 (Version 1)
Quarter: 2024Q3

REPORT INFORMATION
  Report Type: Spontaneous
  Country: US (occurrence: None)
  Receive Date: 20240807
  Receipt Date: 20240807
  Transmission Date: 20241016
  Serious: Yes (Other)
  Sender: Public
  Company Number: None

PATIENT
  Sex: Male
  Weight: 84.6 kg

DRUGS (9)
  1. ORGOVYX [Suspect]
     Active Substance: RELUGOLIX
     Dosage: OTHER QUANTITY : 1 TABLET(S);?OTHER FREQUENCY : EVERY 72 HOURS;?
  2. Hearin aids [Concomitant]
  3. CARVEDILOL [Concomitant]
  4. LISINOPRIL [Concomitant]
  5. ATORVASTATIN [Concomitant]
  6. aspirin [Concomitant]
  7. PEPCID [Concomitant]
     Active Substance: FAMOTIDINE
  8. VITAMIN D [Concomitant]
     Active Substance: VITAMIN D NOS
  9. Krill [Concomitant]

REACTIONS (7)
  - Memory impairment [None]
  - Confusional state [None]
  - Disturbance in attention [None]
  - Anxiety [None]
  - Headache [None]
  - Gait disturbance [None]
  - Ocular discomfort [None]
